FAERS Safety Report 10749183 (Version 13)
Quarter: 2016Q2

REPORT INFORMATION
  Report Type: Report from Study
  Country: DE (occurrence: DE)
  Receive Date: 20150129
  Receipt Date: 20160428
  Transmission Date: 20160815
  Serious: Yes (Other)
  Sender: FDA-Public Use
  Company Number: DE-INCYTE CORPORATION-2015IN000263

PATIENT
  Age: 75 Year
  Sex: Male
  Weight: 67.2 kg

DRUGS (29)
  1. NOVAMINSULFON [Concomitant]
     Active Substance: METAMIZOLE
     Indication: PAIN IN EXTREMITY
     Dosage: UNK, PRN
     Route: 065
     Dates: start: 20141006
  2. HEPARIN [Concomitant]
     Active Substance: HEPARIN SODIUM
     Indication: THROMBOSIS
  3. XARELTO [Suspect]
     Active Substance: RIVAROXABAN
     Dosage: 15 MG, QD
     Route: 065
     Dates: start: 20150916
  4. INCB018424 [Suspect]
     Active Substance: RUXOLITINIB
     Dosage: 20 MG, QD
     Route: 048
     Dates: start: 20150210, end: 20151012
  5. HYTAS//HYDROXYCARBAMIDE [Concomitant]
     Dosage: 500 MG, QD
     Route: 065
     Dates: start: 20151013
  6. LITALIR [Concomitant]
     Active Substance: HYDROXYUREA
     Indication: PRODUCT USED FOR UNKNOWN INDICATION
     Dosage: 500 MG, QD
     Route: 065
     Dates: start: 20141229, end: 20150127
  7. IBUPROFEN. [Concomitant]
     Active Substance: IBUPROFEN
     Indication: PAIN IN EXTREMITY
     Dosage: 1200 MG, QD
     Route: 065
     Dates: start: 20141001
  8. IBUPROFEN. [Concomitant]
     Active Substance: IBUPROFEN
     Indication: ARTHRALGIA
     Dosage: 1200 MG, UNK
     Route: 065
     Dates: start: 20141001
  9. DICLO//DICLOFENAC [Concomitant]
     Indication: ARTHRALGIA
     Dosage: 75 OT, QD
     Route: 065
     Dates: start: 20140919, end: 20140922
  10. ALLOPURINOL. [Concomitant]
     Active Substance: ALLOPURINOL
     Indication: PRODUCT USED FOR UNKNOWN INDICATION
     Dosage: 300 MG, QOD
     Route: 048
     Dates: start: 20091001
  11. IBUPROFEN. [Concomitant]
     Active Substance: IBUPROFEN
     Dosage: 1200 MG, UNK
     Route: 065
     Dates: start: 20141001
  12. IBUPROFEN. [Concomitant]
     Active Substance: IBUPROFEN
     Dosage: 1200 MG, QD
     Route: 065
     Dates: start: 20141001
  13. XARELTO [Suspect]
     Active Substance: RIVAROXABAN
     Indication: ANTICOAGULANT THERAPY
     Dosage: 20 MG, QD
     Route: 065
     Dates: start: 20150825, end: 20150915
  14. HYTAS//HYDROXYCARBAMIDE [Concomitant]
     Indication: PRODUCT USED FOR UNKNOWN INDICATION
     Dosage: 500 OT, QD
     Dates: start: 20151013
  15. NOVAMINSULFON [Concomitant]
     Active Substance: METAMIZOLE
     Indication: ARTHRALGIA
  16. DICLO//DICLOFENAC [Concomitant]
     Indication: PAIN IN EXTREMITY
     Dosage: 75 OT, UNK
     Route: 065
     Dates: start: 20140919
  17. CLEXANE [Concomitant]
     Active Substance: ENOXAPARIN SODIUM
     Indication: PRODUCT USED FOR UNKNOWN INDICATION
     Dosage: 2 DF (2X0.7 ML), UNK
     Route: 065
     Dates: start: 20160210, end: 20160220
  18. INCB018424 [Suspect]
     Active Substance: RUXOLITINIB
     Dosage: 5 MG, BID
     Route: 048
     Dates: start: 20141103, end: 20141117
  19. IBUPROFEN. [Concomitant]
     Active Substance: IBUPROFEN
     Dosage: 1200 MG, UNK
     Route: 065
     Dates: start: 20141001
  20. IBUPROFEN. [Concomitant]
     Active Substance: IBUPROFEN
     Dosage: 1200 MG, QD
     Route: 065
     Dates: start: 20141001
  21. DICLO//DICLOFENAC [Concomitant]
     Dosage: 75 OT, QD
     Route: 065
     Dates: start: 20141201
  22. HEPARIN [Concomitant]
     Active Substance: HEPARIN SODIUM
     Indication: PRODUCT USED FOR UNKNOWN INDICATION
     Dosage: UNK
     Route: 065
  23. IBUPROFEN. [Concomitant]
     Active Substance: IBUPROFEN
     Dosage: 1200 MG, QD
     Route: 065
     Dates: start: 20141001
  24. INCB018424 [Suspect]
     Active Substance: RUXOLITINIB
     Indication: PRIMARY MYELOFIBROSIS
     Dosage: 30 MG, DAILY (TWICE)
     Route: 048
     Dates: start: 20140928
  25. INCB018424 [Suspect]
     Active Substance: RUXOLITINIB
     Dosage: 10 MG, QD
     Route: 048
     Dates: start: 20150127, end: 20150209
  26. INCB018424 [Suspect]
     Active Substance: RUXOLITINIB
     Dosage: 10 MG, QD
     Route: 048
     Dates: start: 20151013, end: 20160105
  27. IBUPROFEN. [Concomitant]
     Active Substance: IBUPROFEN
     Dosage: 1200 MG, QD
     Route: 065
     Dates: start: 20141001
  28. IBUPROFEN. [Concomitant]
     Active Substance: IBUPROFEN
     Dosage: 1200 MG, QD
     Route: 065
     Dates: start: 20141001
  29. IBUPROFEN. [Concomitant]
     Active Substance: IBUPROFEN
     Dosage: 1200 MG, QD
     Route: 065
     Dates: start: 20141001

REACTIONS (20)
  - Myeloproliferative neoplasm [Unknown]
  - Blood lactate dehydrogenase increased [Recovering/Resolving]
  - Thrombocytosis [Not Recovered/Not Resolved]
  - Thermal burn [Not Recovered/Not Resolved]
  - Leukocytosis [Not Recovered/Not Resolved]
  - Thrombocytopenia [Recovering/Resolving]
  - Band neutrophil count decreased [Unknown]
  - C-reactive protein increased [Recovering/Resolving]
  - Oedema peripheral [Recovered/Resolved]
  - Lymphocyte count decreased [Unknown]
  - Osteopenia [Unknown]
  - Osteoarthritis [Not Recovered/Not Resolved]
  - Haematocrit decreased [Recovering/Resolving]
  - Anaemia [Unknown]
  - Weight decreased [Not Recovered/Not Resolved]
  - Erythropoiesis abnormal [Unknown]
  - Megakaryocytes increased [Unknown]
  - Bone pain [Not Recovered/Not Resolved]
  - Hyperhidrosis [Recovered/Resolved]
  - Basophil count increased [Unknown]

NARRATIVE: CASE EVENT DATE: 20141003
